FAERS Safety Report 14684090 (Version 2)
Quarter: 2018Q4

REPORT INFORMATION
  Report Type: Spontaneous
  Country: PL (occurrence: PL)
  Receive Date: 20180327
  Receipt Date: 20181015
  Transmission Date: 20190204
  Serious: Yes (Other)
  Sender: FDA-Public Use
  Company Number: PL-GLAXOSMITHKLINE-PL2018GSK051263

PATIENT
  Age: 24 Year
  Sex: Male
  Weight: 95 kg

DRUGS (2)
  1. NEOTIGASON [Suspect]
     Active Substance: ACITRETIN
     Indication: PSORIASIS
     Dosage: 25 MG, 1D
     Route: 048
  2. NEOTIGASON [Suspect]
     Active Substance: ACITRETIN
     Dosage: 50 MG, UNK
     Route: 048
     Dates: start: 20170407, end: 20170423

REACTIONS (2)
  - Dermatitis exfoliative generalised [Recovering/Resolving]
  - Condition aggravated [Recovering/Resolving]

NARRATIVE: CASE EVENT DATE: 20170414
